FAERS Safety Report 8859154 (Version 1)
Quarter: 2012Q4

REPORT INFORMATION
  Report Type: Spontaneous
  Country: US (occurrence: None)
  Receive Date: 20121024
  Receipt Date: 20121024
  Transmission Date: 20130627
  Serious: Yes (Hospitalization, Other)
  Sender: FDA-Public Use
  Company Number: None

PATIENT
  Age: 22 Year
  Sex: Female
  Weight: 65.77 kg

DRUGS (1)
  1. MIRENA IUD [Suspect]
     Indication: CONTRACEPTION
     Dosage: 1 time vag
     Route: 067
     Dates: start: 20060618, end: 20121022

REACTIONS (5)
  - Abdominal pain [None]
  - Device dislocation [None]
  - Pregnancy with contraceptive device [None]
  - Device dislocation [None]
  - Exposure during pregnancy [None]
